FAERS Safety Report 11514899 (Version 3)
Quarter: 2015Q4

REPORT INFORMATION
  Report Type: Spontaneous
  Country: US (occurrence: US)
  Receive Date: 20150916
  Receipt Date: 20151120
  Transmission Date: 20160304
  Serious: No
  Sender: FDA-Public Use
  Company Number: US-AMGEN-USASP2015094009

PATIENT
  Age: 32 Year
  Sex: Female
  Weight: 72.56 kg

DRUGS (6)
  1. DICLOFENAC [Concomitant]
     Active Substance: DICLOFENAC
     Indication: RHEUMATOID ARTHRITIS
     Dosage: UNK UNK, 2 TIMES/WK
     Route: 048
  2. ENBREL [Suspect]
     Active Substance: ETANERCEPT
     Indication: RHEUMATOID ARTHRITIS
     Dosage: UNK UNK, QWK
     Route: 065
     Dates: start: 20081203
  3. FENUGREEK                          /01475701/ [Concomitant]
     Active Substance: HERBALS
     Dosage: UNK UNK, BID
     Route: 048
     Dates: start: 20150530
  4. FOLIC ACID. [Concomitant]
     Active Substance: FOLIC ACID
     Indication: RHEUMATOID ARTHRITIS
     Dosage: UNK UNK, QD
     Route: 048
  5. FISH OIL [Concomitant]
     Active Substance: FISH OIL
     Indication: RHEUMATOID ARTHRITIS
     Dosage: UNK UNK, QD
     Route: 048
  6. BLESSED THISTLE [Concomitant]
     Dosage: UNK UNK, BID
     Route: 048
     Dates: start: 20150530

REACTIONS (4)
  - Incorrect product storage [Unknown]
  - Pregnancy [Recovered/Resolved]
  - Injection site erythema [Unknown]
  - Device issue [Unknown]

NARRATIVE: CASE EVENT DATE: 2014
